FAERS Safety Report 4384507-1 (Version None)
Quarter: 2004Q2

REPORT INFORMATION
  Report Type: 
  Country: None (occurrence: None)
  Receive Date: 20040610
  Receipt Date: 20031023
  Transmission Date: 20050107
  Serious: Yes (Other)
  Sender: FDA-Public Use
  Company Number: A03200302525

PATIENT
  Age: 53 Year
  Sex: Female
  Weight: 65.7716 kg

DRUGS (8)
  1. ELOXATIN [Suspect]
     Indication: COLORECTAL CANCER
     Dosage: 140 MG Q2W - INTRAVENOUS NOS
     Route: 042
     Dates: start: 20031007, end: 20031007
  2. ELOXATIN [Suspect]
     Indication: METASTASES TO LIVER
     Dosage: 140 MG Q2W - INTRAVENOUS NOS
     Route: 042
     Dates: start: 20031007, end: 20031007
  3. FLUOROURACIL [Concomitant]
  4. LEUCOVORIN [Concomitant]
  5. GRANISETRON [Concomitant]
  6. DEXAMETHASONE [Concomitant]
  7. CHROMAGEN FORTE [Concomitant]
  8. ENOXAPARIN SODIUM [Concomitant]

REACTIONS (3)
  - HYPERSENSITIVITY [None]
  - PARAESTHESIA [None]
  - TONGUE DISORDER [None]
